FAERS Safety Report 10210954 (Version 1)
Quarter: 2014Q2

REPORT INFORMATION
  Report Type: Spontaneous
  Country: GB (occurrence: GB)
  Receive Date: 20140602
  Receipt Date: 20140602
  Transmission Date: 20141212
  Serious: Yes (Disabling, Other)
  Sender: FDA-Public Use
  Company Number: GB-BRISTOL-MYERS SQUIBB COMPANY-20810602

PATIENT
  Sex: Female

DRUGS (5)
  1. ARIPIPRAZOLE [Suspect]
     Route: 064
  2. LAMOTRIGINE [Suspect]
     Route: 064
  3. MIRTAZAPINE [Suspect]
     Route: 064
  4. PROCYCLIDINE [Suspect]
     Route: 064
  5. ZOPICLONE [Suspect]
     Route: 064

REACTIONS (5)
  - Developmental hip dysplasia [Unknown]
  - Feeding disorder neonatal [Unknown]
  - Agitation neonatal [Unknown]
  - Muscular weakness [Unknown]
  - Foetal exposure during pregnancy [Unknown]
